FAERS Safety Report 7639163-3 (Version None)
Quarter: 2011Q3

REPORT INFORMATION
  Report Type: 
  Country: None (occurrence: None)
  Receive Date: 20110721
  Receipt Date: 20110707
  Transmission Date: 20111222
  Serious: Yes (Life-Threatening, Hospitalization)
  Sender: FDA-Public Use
  Company Number: 1000022188

PATIENT
  Age: 38 Year
  Sex: Male

DRUGS (9)
  1. ESCITALOPRAM OXALATE [Suspect]
     Indication: DEPRESSION
     Dosage: 20 MG (20 MG, 1 IN 1 D), ORAL (120 MG, ONCE), ORAL
     Route: 048
     Dates: start: 20110519, end: 20110519
  2. ESCITALOPRAM OXALATE [Suspect]
     Indication: DEPRESSION
     Dosage: 20 MG (20 MG, 1 IN 1 D), ORAL (120 MG, ONCE), ORAL
     Route: 048
     Dates: start: 20100901, end: 20110518
  3. ALCOHOL (ETHANOL) [Suspect]
     Dosage: (1 LIT), ORAL
     Route: 048
     Dates: start: 20110519, end: 20110519
  4. XANAX [Suspect]
     Dosage: ORAL (7.5 MG, ONCE), ORAL
     Route: 048
     Dates: start: 20110519, end: 20110519
  5. XANAX [Suspect]
     Dosage: ORAL (7.5 MG, ONCE), ORAL
     Route: 048
     Dates: start: 20110516, end: 20110518
  6. MIRTAZAPINE [Suspect]
     Dosage: ORAL (90 MG, ONCE), ORAL
     Route: 048
     Dates: start: 20101001, end: 20110518
  7. MIRTAZAPINE [Suspect]
     Dosage: ORAL (90 MG, ONCE), ORAL
     Route: 048
     Dates: start: 20110519, end: 20110519
  8. PROPRANOLOL [Suspect]
     Dosage: ORAL (320 MG, ONCE), ORAL
     Route: 048
     Dates: start: 20110501, end: 20110518
  9. PROPRANOLOL [Suspect]
     Dosage: ORAL (320 MG, ONCE), ORAL
     Route: 048
     Dates: start: 20110519, end: 20110519

REACTIONS (6)
  - HEPATIC STEATOSIS [None]
  - REYE'S SYNDROME [None]
  - ALCOHOL USE [None]
  - INCORRECT DOSE ADMINISTERED [None]
  - UNEVALUABLE EVENT [None]
  - HEPATITIS ACUTE [None]
